FAERS Safety Report 5472214-3 (Version None)
Quarter: 2007Q3

REPORT INFORMATION
  Report Type: 
  Country: None (occurrence: None)
  Receive Date: 20070926
  Receipt Date: 20070913
  Transmission Date: 20080115
  Serious: Yes (Other)
  Sender: FDA-Public Use
  Company Number: 018406

PATIENT
  Age: 54 Year
  Sex: Female

DRUGS (2)
  1. CLARAVIS [Suspect]
     Indication: GLIOBLASTOMA
     Dosage: 80 MG, BID; ORAL; 80 MG, BID; ORAL,
     Route: 048
     Dates: start: 20070712, end: 20070806
  2. CLARAVIS [Suspect]
     Indication: GLIOBLASTOMA
     Dosage: 80 MG, BID; ORAL; 80 MG, BID; ORAL,
     Route: 048
     Dates: start: 20070320

REACTIONS (4)
  - DISEASE PROGRESSION [None]
  - GLIOBLASTOMA [None]
  - HEPATIC STEATOSIS [None]
  - TREATMENT FAILURE [None]
